FAERS Safety Report 11661044 (Version 1)
Quarter: 2015Q4

REPORT INFORMATION
  Report Type: Spontaneous
  Country: US (occurrence: US)
  Receive Date: 20151026
  Receipt Date: 20151026
  Transmission Date: 20160304
  Serious: No
  Sender: FDA-Public Use
  Company Number: US-HORIZON-PEN-0189-2015

PATIENT
  Age: 43 Year
  Sex: Male

DRUGS (1)
  1. PENNSAID [Suspect]
     Active Substance: DICLOFENAC SODIUM
     Indication: ARTHRALGIA
     Dosage: 2 PUMPS BID TO RIGHT KNEE

REACTIONS (3)
  - Application site exfoliation [Not Recovered/Not Resolved]
  - Off label use [Unknown]
  - Application site rash [Recovered/Resolved]
